FAERS Safety Report 8870248 (Version 2)
Quarter: 2013Q3

REPORT INFORMATION
  Report Type: Spontaneous
  Country: US (occurrence: US)
  Receive Date: 20121026
  Receipt Date: 20130930
  Transmission Date: 20140515
  Serious: No
  Sender: FDA-Public Use
  Company Number: US-AMGEN-USASP2012043634

PATIENT
  Age: 50 Year
  Sex: Female
  Weight: 93.42 kg

DRUGS (9)
  1. ENBREL [Suspect]
     Indication: FIBROMYALGIA
     Dosage: 50 MG, QWK
     Dates: start: 20120127
  2. ENBREL [Suspect]
     Indication: RHEUMATOID ARTHRITIS
  3. CYMBALTA [Concomitant]
     Dosage: 30 MG, UNK
  4. XANAX [Concomitant]
     Dosage: 0.5 MG, UNK
  5. FIORICET [Concomitant]
  6. CYCLOBENZAPRINE [Concomitant]
     Dosage: 5 MG, UNK
  7. MOBIC [Concomitant]
     Dosage: 7.5 MG, UNK
  8. FOLIC ACID [Concomitant]
     Dosage: 5 MG, UNK
  9. METHOTREXATE [Concomitant]
     Dosage: 1 G, UNK

REACTIONS (6)
  - Migraine [Not Recovered/Not Resolved]
  - Somnolence [Not Recovered/Not Resolved]
  - Rheumatoid arthritis [Unknown]
  - Sinus headache [Unknown]
  - Sinus disorder [Unknown]
  - Nasopharyngitis [Recovered/Resolved]
